FAERS Safety Report 5451920-0 (Version None)
Quarter: 2007Q3

REPORT INFORMATION
  Report Type: 
  Country: None (occurrence: None)
  Receive Date: 20070912
  Receipt Date: 20070830
  Transmission Date: 20080115
  Serious: Yes (Other)
  Sender: FDA-Public Use
  Company Number: 20070224

PATIENT
  Age: 24 Year
  Sex: Female

DRUGS (1)
  1. VENOFER [Suspect]
     Dosage: 200 MG; 2  IN 1 3 D; INTRAVENOUS DRIP
     Route: 041
     Dates: start: 20070809, end: 20070811

REACTIONS (1)
  - VENOUS THROMBOSIS LIMB [None]
